FAERS Safety Report 14871465 (Version 1)
Quarter: 2018Q2

REPORT INFORMATION
  Report Type: Spontaneous
  Country: BR (occurrence: BR)
  Receive Date: 20180509
  Receipt Date: 20180509
  Transmission Date: 20180711
  Serious: Yes (Other)
  Sender: FDA-Public Use
  Company Number: BR-SA-2018SA130495

PATIENT
  Sex: Female

DRUGS (2)
  1. LANTUS [Suspect]
     Active Substance: INSULIN GLARGINE
     Indication: DIABETES MELLITUS
     Dosage: DOSE:20 UNIT(S)
     Route: 058
     Dates: start: 1996
  2. CLIKSTAR [Suspect]
     Active Substance: CLIKSTAR

REACTIONS (4)
  - Hyperglycaemia [Unknown]
  - Device issue [Unknown]
  - Infarction [Unknown]
  - Product use issue [Unknown]
